FAERS Safety Report 24357212 (Version 1)
Quarter: 2024Q3

REPORT INFORMATION
  Report Type: Spontaneous
  Country: US (occurrence: None)
  Receive Date: 20240924
  Receipt Date: 20240924
  Transmission Date: 20241016
  Serious: No
  Sender: Public
  Company Number: None

PATIENT
  Age: 26 Year
  Sex: Female

DRUGS (1)
  1. ZEPBOUND [Suspect]
     Active Substance: TIRZEPATIDE
     Dosage: 7.5 MG WEEKLY SUBCUTANEOUSLY
     Dates: start: 20240612

REACTIONS (2)
  - Pulmonary embolism [None]
  - Deep vein thrombosis [None]
